FAERS Safety Report 14669559 (Version 1)
Quarter: 2018Q1

REPORT INFORMATION
  Report Type: Spontaneous
  Country: US (occurrence: US)
  Receive Date: 20180322
  Receipt Date: 20180322
  Transmission Date: 20180509
  Serious: No
  Sender: FDA-Public Use
  Company Number: US-JNJFOC-20180229223

PATIENT
  Sex: Female

DRUGS (4)
  1. BENADRYL ALLERGY LIQUI-GELS [Suspect]
     Active Substance: DIPHENHYDRAMINE HYDROCHLORIDE
     Indication: SLEEP DISORDER THERAPY
     Dosage: 1 PILL AND THEN 8 HOURS AFTER THAT TOOK ANOTHER PILL
     Route: 048
  2. TYLENOL 8 HR ARTHRITIS PAIN [Suspect]
     Active Substance: ACETAMINOPHEN
     Indication: WOUND COMPLICATION
     Route: 048
     Dates: start: 20180218
  3. OXYCODONE [Concomitant]
     Active Substance: OXYCODONE
     Indication: WOUND
     Route: 065
  4. TYLENOL 8 HR ARTHRITIS PAIN [Suspect]
     Active Substance: ACETAMINOPHEN
     Route: 048

REACTIONS (1)
  - Product use in unapproved indication [Unknown]
